FAERS Safety Report 4755674-2 (Version None)
Quarter: 2005Q3

REPORT INFORMATION
  Report Type: 
  Country: None (occurrence: None)
  Receive Date: 20050830
  Receipt Date: 20050617
  Transmission Date: 20060218
  Serious: No
  Sender: FDA-Public Use
  Company Number: US-BRISTOL-MYERS SQUIBB COMPANY-13015771

PATIENT
  Age: 20 Year
  Sex: Female

DRUGS (3)
  1. ABILIFY [Suspect]
  2. LAMICTAL [Concomitant]
  3. CYMBALTA [Concomitant]

REACTIONS (1)
  - TREMOR [None]
